FAERS Safety Report 9556094 (Version 1)
Quarter: 2013Q3

REPORT INFORMATION
  Report Type: Spontaneous
  Country: US (occurrence: None)
  Receive Date: 20130815
  Receipt Date: 20130815
  Transmission Date: 20140515
  Serious: Yes (Hospitalization)
  Sender: FDA-Public Use
  Company Number: ADR-2013-00627

PATIENT
  Sex: Male

DRUGS (1)
  1. BACLOFEN INTRATHECAL [Suspect]
     Indication: MUSCLE SPASTICITY

REACTIONS (9)
  - Clonus [None]
  - Insomnia [None]
  - Drug withdrawal syndrome [None]
  - Malaise [None]
  - Myoclonus [None]
  - Muscle spasticity [None]
  - Hyperhidrosis [None]
  - Urinary tract infection [None]
  - Rash [None]
